FAERS Safety Report 10022681 (Version 3)
Quarter: 2014Q2

REPORT INFORMATION
  Report Type: Spontaneous
  Country: US (occurrence: US)
  Receive Date: 20140319
  Receipt Date: 20140430
  Transmission Date: 20141212
  Serious: No
  Sender: FDA-Public Use
  Company Number: US-PFIZER INC-2014077676

PATIENT
  Age: 78 Year
  Sex: Male

DRUGS (1)
  1. SUTENT [Suspect]
     Dosage: 50 MG, CYCLIC DAILY

REACTIONS (5)
  - Burning sensation [Unknown]
  - Oral discomfort [Unknown]
  - Feeling hot [Unknown]
  - Pain in extremity [Unknown]
  - Dyspepsia [Unknown]
